FAERS Safety Report 17454930 (Version 2)
Quarter: 2025Q3

REPORT INFORMATION
  Report Type: Spontaneous
  Country: CA (occurrence: CA)
  Receive Date: 20200225
  Receipt Date: 20250807
  Transmission Date: 20251021
  Serious: Yes (Other)
  Sender: ROCHE
  Company Number: CA-002147023-NVSC2020CA044483

PATIENT
  Age: 59 Year
  Sex: Female

DRUGS (23)
  1. XOLAIR [Suspect]
     Active Substance: OMALIZUMAB
     Indication: Asthma
     Route: 058
  2. XOLAIR [Suspect]
     Active Substance: OMALIZUMAB
     Route: 058
  3. ALENDRONATE SODIUM [Suspect]
     Active Substance: ALENDRONATE SODIUM
     Indication: Bone cancer
     Route: 048
  4. CALCIUM CARBONATE [Suspect]
     Active Substance: CALCIUM CARBONATE
     Indication: Bone disorder
     Route: 048
  5. CALCIUM CARBONATE [Suspect]
     Active Substance: CALCIUM CARBONATE
     Route: 048
  6. CALCIUM CARBONATE [Suspect]
     Active Substance: CALCIUM CARBONATE
     Route: 048
  7. FUROSEMIDE [Suspect]
     Active Substance: FUROSEMIDE
     Indication: Diuretic therapy
     Route: 048
  8. PANTOPRAZOLE [Suspect]
     Active Substance: PANTOPRAZOLE
     Indication: Gastrointestinal disorder
     Route: 048
  9. VITAMIN D3 [Suspect]
     Active Substance: CHOLECALCIFEROL
     Indication: Bone disorder
     Route: 048
  10. VITAMIN D3 [Suspect]
     Active Substance: CHOLECALCIFEROL
     Route: 048
  11. VITAMIN D3 [Suspect]
     Active Substance: CHOLECALCIFEROL
     Route: 048
  12. ALVESCO [Concomitant]
     Active Substance: CICLESONIDE
     Indication: Product used for unknown indication
     Route: 065
  13. DOMPERIDONE [Concomitant]
     Active Substance: DOMPERIDONE
     Indication: Product used for unknown indication
     Route: 065
  14. PREDNISONE [Concomitant]
     Active Substance: PREDNISONE
     Indication: Product used for unknown indication
     Route: 065
  15. SINGULAIR [Concomitant]
     Active Substance: MONTELUKAST SODIUM
     Indication: Product used for unknown indication
     Route: 065
  16. SPIRIVA [Concomitant]
     Active Substance: TIOTROPIUM BROMIDE MONOHYDRATE
     Indication: Product used for unknown indication
     Route: 065
  17. VENTOLIN [Concomitant]
     Active Substance: ALBUTEROL SULFATE
     Indication: Product used for unknown indication
     Route: 065
  18. ZENHALE [Concomitant]
     Active Substance: FORMOTEROL FUMARATE\MOMETASONE FUROATE
     Indication: Product used for unknown indication
     Route: 065
  19. CICLESONIDE [Concomitant]
     Active Substance: CICLESONIDE
  20. FORMOTEROL [Concomitant]
     Active Substance: FORMOTEROL
  21. MOMETASONE FUROATE [Concomitant]
     Active Substance: MOMETASONE FUROATE
  22. MONTELUKAST [Concomitant]
     Active Substance: MONTELUKAST
  23. ALBUTEROL [Concomitant]
     Active Substance: ALBUTEROL

REACTIONS (8)
  - Alopecia [Not Recovered/Not Resolved]
  - Asthma [Not Recovered/Not Resolved]
  - Drug ineffective [Unknown]
  - Pneumonia [Not Recovered/Not Resolved]
  - Respiratory tract congestion [Not Recovered/Not Resolved]
  - Secretion discharge [Not Recovered/Not Resolved]
  - Sputum discoloured [Not Recovered/Not Resolved]
  - Weight increased [Not Recovered/Not Resolved]
